FAERS Safety Report 15677581 (Version 4)
Quarter: 2022Q1

REPORT INFORMATION
  Report Type: Spontaneous
  Country: JP (occurrence: JP)
  Receive Date: 20181130
  Receipt Date: 20220329
  Transmission Date: 20220423
  Serious: Yes (Hospitalization)
  Sender: FDA-Public Use
  Company Number: JP-PFIZER INC-2018496719

PATIENT
  Age: 25 Month
  Sex: Male

DRUGS (3)
  1. FOSPHENYTOIN SODIUM [Suspect]
     Active Substance: FOSPHENYTOIN SODIUM
     Indication: Febrile convulsion
     Dosage: UNK
     Route: 065
  2. MIDAZOLAM [Suspect]
     Active Substance: MIDAZOLAM
     Indication: Febrile convulsion
     Dosage: UNK
     Route: 065
  3. THIOPENTAL SODIUM [Concomitant]
     Active Substance: THIOPENTAL SODIUM
     Indication: Seizure
     Dosage: UNK
     Route: 065

REACTIONS (2)
  - Nephritis bacterial [Recovered/Resolved]
  - Encephalopathy [Recovered/Resolved]
